FAERS Safety Report 4717791-2 (Version None)
Quarter: 2005Q3

REPORT INFORMATION
  Report Type: 
  Country: None (occurrence: None)
  Receive Date: 20050715
  Receipt Date: 20040929
  Transmission Date: 20060218
  Serious: Yes (Other)
  Sender: FDA-Public Use
  Company Number: 2004-00589

PATIENT

DRUGS (4)
  1. INTEGRILIN [Suspect]
     Indication: ANGINA UNSTABLE
     Dates: start: 20040801
  2. REOPRO [Suspect]
     Indication: ANGINA UNSTABLE
     Dates: start: 20040801
  3. PLAVIX [Concomitant]
  4. ASPIRIN [Concomitant]

REACTIONS (1)
  - THROMBOCYTOPENIA [None]
